FAERS Safety Report 7277597-X (Version None)
Quarter: 2011Q1

REPORT INFORMATION
  Report Type: 
  Country: None (occurrence: None)
  Receive Date: 20110207
  Receipt Date: 20110127
  Transmission Date: 20110831
  Serious: Yes (Death, Hospitalization)
  Sender: FDA-Public Use
  Company Number: DE-ELI_LILLY_AND_COMPANY-DE201101004588

PATIENT
  Sex: Male
  Weight: 71 kg

DRUGS (11)
  1. NECITUMUMAB (11F8) (LY3012211) [Suspect]
     Indication: NON-SMALL CELL LUNG CANCER STAGE IV
     Dosage: 800 MG, OTHER
     Dates: start: 20101117
  2. CISPLATIN [Suspect]
     Indication: NON-SMALL CELL LUNG CANCER STAGE IV
     Dosage: 143 MG, OTHER
     Dates: start: 20101117
  3. ALLOPURINOL [Concomitant]
     Indication: HYPERURICAEMIA
  4. IBUPROFEN [Concomitant]
     Indication: PAIN
     Dates: start: 20101001
  5. VITAMIN B-12 [Concomitant]
     Indication: PROPHYLAXIS
     Dates: start: 20101101
  6. FENISTIL [Concomitant]
     Indication: PRURITUS
     Dates: start: 20101210
  7. ZOMETA [Concomitant]
     Indication: METASTASES TO BONE
     Dates: start: 20101105
  8. PANTOZOL [Concomitant]
     Indication: PROPHYLAXIS
     Dosage: UNK, UNK
  9. PEMETREXED [Suspect]
     Indication: NON-SMALL CELL LUNG CANCER STAGE IV
     Dosage: 950 MG, OTHER
     Dates: start: 20101117
  10. EUTHYROX [Concomitant]
     Indication: HYPOTHYROIDISM
  11. FOLSAN [Concomitant]
     Indication: PROPHYLAXIS
     Dates: start: 20101101

REACTIONS (3)
  - PNEUMONIA [None]
  - ABDOMINAL PAIN UPPER [None]
  - RESPIRATORY FAILURE [None]
